FAERS Safety Report 21570378 (Version 2)
Quarter: 2022Q4

REPORT INFORMATION
  Report Type: Other
  Country: US (occurrence: None)
  Receive Date: 20221109
  Receipt Date: 20221114
  Transmission Date: 20230112
  Serious: Yes (Hospitalization, Other)
  Sender: FDA-Public Use
  Company Number: US-ROCHE-3213654

PATIENT
  Age: 65 Year
  Sex: Female

DRUGS (14)
  1. OCREVUS [Suspect]
     Active Substance: OCRELIZUMAB
     Indication: Relapsing multiple sclerosis
     Route: 042
     Dates: start: 20220919
  2. ATORVASTATIN [Concomitant]
     Active Substance: ATORVASTATIN
  3. OXYBUTYNIN CHLORIDE [Concomitant]
     Active Substance: OXYBUTYNIN CHLORIDE
  4. HYDROCODONE [Concomitant]
     Active Substance: HYDROCODONE
  5. DEXTROAMPHETAMINE [Concomitant]
     Active Substance: DEXTROAMPHETAMINE
  6. CYANOCOBALAMIN [Concomitant]
     Active Substance: CYANOCOBALAMIN
  7. LORAZEPAM [Concomitant]
     Active Substance: LORAZEPAM
  8. AMBIEN [Concomitant]
     Active Substance: ZOLPIDEM TARTRATE
  9. CALCIUM GLUCONATE [Concomitant]
     Active Substance: CALCIUM GLUCONATE
  10. PREGABALIN [Concomitant]
     Active Substance: PREGABALIN
  11. CRANBERRY [Concomitant]
     Active Substance: CRANBERRY
  12. AMLODIPINE [Concomitant]
     Active Substance: AMLODIPINE BESYLATE
  13. CHOLECALCIFEROL [Concomitant]
     Active Substance: CHOLECALCIFEROL
  14. CALCIUM CITRATE [Concomitant]
     Active Substance: CALCIUM CITRATE

REACTIONS (12)
  - Renal failure [Unknown]
  - Demyelination [Unknown]
  - Blood iron decreased [Unknown]
  - Vitamin D decreased [Unknown]
  - Migraine [Unknown]
  - Arthralgia [Unknown]
  - Dysphagia [Unknown]
  - COVID-19 [Recovered/Resolved]
  - Hypotension [Unknown]
  - Alopecia [Unknown]
  - Blood parathyroid hormone increased [Unknown]
  - Skin plaque [Unknown]
